FAERS Safety Report 8543387-0 (Version None)
Quarter: 2012Q3

REPORT INFORMATION
  Report Type: 
  Country: None (occurrence: None)
  Receive Date: 20120727
  Receipt Date: 20120716
  Transmission Date: 20120928
  Serious: Yes (Other)
  Sender: FDA-Public Use
  Company Number: US-BAYER-2012-072346

PATIENT
  Age: 17 Year
  Sex: Female
  Weight: 64 kg

DRUGS (7)
  1. TYLENOL [Concomitant]
  2. ZANTAC [Concomitant]
  3. ZYRTEC [Concomitant]
  4. ADDERALL 5 [Concomitant]
  5. YAZ [Suspect]
  6. PHENERGAN HCL [Concomitant]
  7. DARVOCET [Concomitant]

REACTIONS (1)
  - DEEP VEIN THROMBOSIS [None]
